FAERS Safety Report 9120473 (Version 4)
Quarter: 2013Q4

REPORT INFORMATION
  Report Type: Spontaneous
  Country: US (occurrence: US)
  Receive Date: 20130226
  Receipt Date: 20131227
  Transmission Date: 20140711
  Serious: Yes (Death, Hospitalization)
  Sender: FDA-Public Use
  Company Number: US-CELGENEUS-163-21880-12062959

PATIENT
  Age: 77 Year
  Sex: Female
  Weight: 63.5 kg

DRUGS (22)
  1. REVLIMID [Suspect]
     Indication: PLASMA CELL MYELOMA
     Dosage: 25 MILLIGRAM
     Route: 048
     Dates: start: 20120328, end: 20120604
  2. ELOTUZUMAB [Suspect]
     Indication: PLASMA CELL MYELOMA
     Route: 041
     Dates: start: 20120328, end: 20120523
  3. DEXAMETHASONE [Suspect]
     Indication: PLASMA CELL MYELOMA
     Dosage: 8MG IV + 25MG PO, 40MG PO
     Route: 041
     Dates: start: 20120327, end: 20120523
  4. DEXAMETHASONE [Suspect]
     Route: 048
     Dates: start: 20120327, end: 20120529
  5. ENOXAPARIN SODIUM [Concomitant]
     Indication: PRODUCT USED FOR UNKNOWN INDICATION
     Route: 050
     Dates: start: 20120328
  6. DIPHENHYDRAMINE [Concomitant]
     Indication: ADVERSE EVENT
     Route: 065
     Dates: start: 20120331, end: 20120331
  7. AMOXICILLIN/CLAVULANATE [Concomitant]
     Indication: ADVERSE EVENT
     Route: 065
     Dates: start: 20120424, end: 20120505
  8. GABAPENTIN [Concomitant]
     Indication: PRODUCT USED FOR UNKNOWN INDICATION
     Route: 065
     Dates: start: 201105, end: 20120709
  9. GABAPENTIN [Concomitant]
     Route: 065
     Dates: start: 20120611, end: 20120614
  10. ULTRAM [Concomitant]
     Indication: PRODUCT USED FOR UNKNOWN INDICATION
     Route: 065
     Dates: start: 201105
  11. OXYCONTIN [Concomitant]
     Indication: PRODUCT USED FOR UNKNOWN INDICATION
     Route: 065
     Dates: end: 20120709
  12. MVI [Concomitant]
     Indication: PRODUCT USED FOR UNKNOWN INDICATION
     Route: 065
     Dates: start: 20120710
  13. LACTULOSE [Concomitant]
     Indication: ADVERSE EVENT
     Route: 065
     Dates: start: 20120710, end: 20120711
  14. LACTULOSE [Concomitant]
     Route: 065
     Dates: start: 20120711
  15. PROMETHAZINE [Concomitant]
     Indication: ADVERSE EVENT
     Route: 065
     Dates: start: 20120609, end: 20120614
  16. PROMETHAZINE [Concomitant]
     Route: 065
     Dates: start: 20120710, end: 20120711
  17. PANTOPRAZOLE SODIUM [Concomitant]
     Indication: ADVERSE EVENT
     Route: 065
     Dates: start: 20120609, end: 20120614
  18. ONDASETRON [Concomitant]
     Indication: ADVERSE EVENT
     Route: 065
     Dates: start: 20120610, end: 20120614
  19. KCL [Concomitant]
     Indication: ADVERSE EVENT
     Route: 065
     Dates: start: 20120612, end: 20120614
  20. SODIUM CHLORIDE [Concomitant]
     Indication: ADVERSE EVENT
     Route: 065
     Dates: start: 20120612, end: 20120614
  21. LOVENOX [Concomitant]
     Indication: PRODUCT USED FOR UNKNOWN INDICATION
     Dosage: 40 MILLIGRAM
     Route: 065
     Dates: start: 20120328, end: 20120424
  22. IMIPENEM-CILASTATIN [Concomitant]
     Indication: ADVERSE EVENT
     Route: 065
     Dates: start: 20120610, end: 20120614

REACTIONS (4)
  - Plasma cell myeloma [Fatal]
  - Pancreatitis acute [Recovered/Resolved with Sequelae]
  - Multi-organ failure [Recovered/Resolved with Sequelae]
  - Hyperbilirubinaemia [Recovered/Resolved]
